FAERS Safety Report 7055973-8 (Version None)
Quarter: 2010Q4

REPORT INFORMATION
  Report Type: 
  Country: None (occurrence: None)
  Receive Date: 20101021
  Receipt Date: 20101014
  Transmission Date: 20110411
  Serious: Yes (Other)
  Sender: FDA-Public Use
  Company Number: A0883326A

PATIENT
  Age: 54 Year
  Sex: Female

DRUGS (3)
  1. ADVAIR DISKUS 100/50 [Suspect]
     Dosage: 1PUFF TWICE PER DAY
     Route: 055
  2. TAMOXIFEN CITRATE [Concomitant]
  3. EFFEXOR [Concomitant]

REACTIONS (2)
  - CATARACT [None]
  - VISION BLURRED [None]
